FAERS Safety Report 25201508 (Version 2)
Quarter: 2025Q2

REPORT INFORMATION
  Report Type: Spontaneous
  Country: HR (occurrence: HR)
  Receive Date: 20250416
  Receipt Date: 20250610
  Transmission Date: 20250717
  Serious: Yes (Hospitalization, Other)
  Sender: AMGEN
  Company Number: HR-PFIZER INC-PV202500043400

PATIENT
  Age: 71 Year
  Sex: Female

DRUGS (15)
  1. ENBREL [Suspect]
     Active Substance: ETANERCEPT
     Indication: Product used for unknown indication
     Route: 058
     Dates: start: 201406
  2. PREDNISONE [Concomitant]
     Active Substance: PREDNISONE
  3. METHOTREXATE [Concomitant]
     Active Substance: METHOTREXATE
     Dosage: 12.5 MG, WEEKLY
  4. FOLIC ACID [Concomitant]
     Active Substance: FOLIC ACID
     Dosage: 5 MG, WEEKLY
  5. GLICLAZIDE [Concomitant]
     Active Substance: GLICLAZIDE
  6. VILDAGLIPTIN [Concomitant]
     Active Substance: VILDAGLIPTIN
  7. METFORMIN HYDROCHLORIDE [Concomitant]
     Active Substance: METFORMIN HYDROCHLORIDE
  8. ATORVASTATIN [Concomitant]
     Active Substance: ATORVASTATIN
  9. RAMIPRIL [Concomitant]
     Active Substance: RAMIPRIL
  10. FUROSEMIDE [Concomitant]
     Active Substance: FUROSEMIDE
  11. POTASSIUM CITRATE [Concomitant]
     Active Substance: POTASSIUM CITRATE
  12. CHOLECALCIFEROL [Concomitant]
     Active Substance: CHOLECALCIFEROL
  13. CALCIUM [Concomitant]
     Active Substance: CALCIUM
  14. TRAMADOL [Concomitant]
     Active Substance: TRAMADOL
  15. ACETAMINOPHEN [Concomitant]
     Active Substance: ACETAMINOPHEN

REACTIONS (8)
  - COVID-19 [Unknown]
  - Cellulitis gangrenous [Unknown]
  - Osteomyelitis [Unknown]
  - Hip surgery [Unknown]
  - Osteoarthritis [Unknown]
  - Influenza [Unknown]
  - Sciatica [Unknown]
  - Stenosis [Unknown]

NARRATIVE: CASE EVENT DATE: 20180101
